FAERS Safety Report 24047078 (Version 1)
Quarter: 2024Q3

REPORT INFORMATION
  Report Type: Spontaneous
  Country: US (occurrence: US)
  Receive Date: 20240703
  Receipt Date: 20240703
  Transmission Date: 20241017
  Serious: Yes (Hospitalization)
  Sender: AMGEN
  Company Number: US-AMGEN-USASP2024128111

PATIENT
  Age: 25 Year
  Sex: Female

DRUGS (3)
  1. PREDNISONE [Suspect]
     Active Substance: PREDNISONE
     Indication: Systemic lupus erythematosus
     Dosage: UNK
     Route: 065
  2. AZATHIOPRINE [Concomitant]
     Active Substance: AZATHIOPRINE
     Indication: Systemic lupus erythematosus
     Dosage: UNK
     Route: 065
  3. HYDROXYCHLOROQUINE [Concomitant]
     Active Substance: HYDROXYCHLOROQUINE
     Indication: Systemic lupus erythematosus
     Dosage: UNK
     Route: 065

REACTIONS (9)
  - Road traffic accident [Unknown]
  - Subdural haematoma [Unknown]
  - Sepsis [Unknown]
  - Babesiosis [Unknown]
  - Acute respiratory distress syndrome [Recovering/Resolving]
  - Subdural abscess [Unknown]
  - Herpes simplex pneumonia [Unknown]
  - Haemoglobin decreased [Unknown]
  - Transfusion reaction [Unknown]
